FAERS Safety Report 11320986 (Version 2)
Quarter: 2015Q4

REPORT INFORMATION
  Report Type: Spontaneous
  Country: US (occurrence: US)
  Receive Date: 20150729
  Receipt Date: 20151016
  Transmission Date: 20160304
  Serious: No
  Sender: FDA-Public Use
  Company Number: US-PFIZER INC-2015243956

PATIENT
  Age: 61 Year
  Sex: Female

DRUGS (1)
  1. IBRANCE [Suspect]
     Active Substance: PALBOCICLIB
     Indication: BREAST CANCER
     Dosage: 125 MG, DAILY CYCLIC (FOR 21 DAYS, THEN 7 DAY OFF)
     Route: 048

REACTIONS (3)
  - Skin disorder [Unknown]
  - Back pain [Unknown]
  - Alopecia [Unknown]
